FAERS Safety Report 23466167 (Version 1)
Quarter: 2024Q1

REPORT INFORMATION
  Report Type: Spontaneous
  Country: US (occurrence: None)
  Receive Date: 20240131
  Receipt Date: 20240131
  Transmission Date: 20240410
  Serious: Yes (Hospitalization)
  Sender: FDA-Public Use
  Company Number: None

PATIENT
  Age: 86 Year
  Sex: Female
  Weight: 69.4 kg

DRUGS (2)
  1. FRUQUINTINIB [Suspect]
     Active Substance: FRUQUINTINIB
     Indication: Colon cancer metastatic
     Dosage: FREQUENCY : DAILY;?
     Route: 048
     Dates: start: 20240112
  2. FRUQUINTINIB [Concomitant]
     Active Substance: FRUQUINTINIB
     Dates: start: 20240112

REACTIONS (5)
  - Pyrexia [None]
  - Lethargy [None]
  - Mental status changes [None]
  - Hypothyroidism [None]
  - Fall [None]

NARRATIVE: CASE EVENT DATE: 20240125
